FAERS Safety Report 8586935-7 (Version None)
Quarter: 2012Q3

REPORT INFORMATION
  Report Type: 
  Country: None (occurrence: None)
  Receive Date: 20120810
  Receipt Date: 20120808
  Transmission Date: 20120928
  Serious: No
  Sender: FDA-Public Use
  Company Number: US-PFIZER INC-2012193933

PATIENT
  Sex: Female

DRUGS (1)
  1. PREMARIN [Suspect]
     Indication: BONE DISORDER
     Dosage: UNK, 1X/DAY
     Route: 067

REACTIONS (1)
  - THERAPEUTIC RESPONSE UNEXPECTED [None]
